FAERS Safety Report 4348308-2 (Version None)
Quarter: 2004Q2

REPORT INFORMATION
  Report Type: 
  Country: None (occurrence: None)
  Receive Date: 20040422
  Receipt Date: 20040413
  Transmission Date: 20050107
  Serious: Yes (Hospitalization, Other)
  Sender: FDA-Public Use
  Company Number: FRWYE702414APR04

PATIENT
  Age: 62 Year
  Sex: Male

DRUGS (2)
  1. RAPAMUNE [Suspect]
     Indication: PROPHYLAXIS AGAINST TRANSPLANT REJECTION
     Dosage: 8 MG DAILY AT EVENT ONSET, ORAL
     Route: 048
     Dates: start: 20021004, end: 20030509
  2. CELCEPT (MYCOPHENOLATE MOFETIL) [Suspect]
     Indication: PROPHYLAXIS AGAINST TRANSPLANT REJECTION
     Dosage: 2 G DAILY, ORAL
     Route: 048
     Dates: start: 20021003

REACTIONS (2)
  - BLOOD PRESSURE INCREASED [None]
  - DIABETIC KETOACIDOSIS [None]
